FAERS Safety Report 4548822-0 (Version None)
Quarter: 2004Q4

REPORT INFORMATION
  Report Type: 
  Country: None (occurrence: None)
  Receive Date: 20041227
  Receipt Date: 20041020
  Transmission Date: 20050328
  Serious: No
  Sender: FDA-Public Use
  Company Number: 04P-163-0247945-00

PATIENT
  Age: 53 Year
  Sex: Female
  Weight: 105 kg

DRUGS (26)
  1. HUMIRA [Suspect]
     Indication: RHEUMATOID ARTHRITIS
     Dosage: SEE IMAGE
     Route: 058
     Dates: start: 20031101, end: 20040102
  2. HUMIRA [Suspect]
     Indication: RHEUMATOID ARTHRITIS
     Dosage: SEE IMAGE
     Route: 058
     Dates: start: 20040116, end: 20040121
  3. HUMIRA [Suspect]
     Indication: RHEUMATOID ARTHRITIS
     Dosage: SEE IMAGE
     Route: 058
     Dates: start: 20040101, end: 20040901
  4. BUCINDOLOL HYDROCHLORIDE [Concomitant]
  5. ZAFIRLUKAST [Concomitant]
  6. IPATROPIUM BROMIDE [Concomitant]
  7. ALBUTEROL [Concomitant]
  8. SALMETEROL XINAFOATE [Concomitant]
  9. FLUTICASONE PROPIONATE [Concomitant]
  10. CIMETIDINE [Concomitant]
  11. PANTOPRAZOLE [Concomitant]
  12. FEXOFENADINE HYDROCHLORIDE [Concomitant]
  13. SPIRONOLACTONE [Concomitant]
  14. ATORVASTATIN [Concomitant]
  15. ZELNORM [Concomitant]
  16. VITACON FORTE [Concomitant]
  17. FOLIC ACID [Concomitant]
  18. GLUCOSAMINE [Concomitant]
  19. PENTAZOCINE [Concomitant]
  20. PROPACET 100 [Concomitant]
  21. ASCORBIC ACID [Concomitant]
  22. TOCOPHEROL CONCENTRATE CAP [Concomitant]
  23. MUCINEX [Concomitant]
  24. AMITRIPTYLINE HYDROCHLORIDE [Concomitant]
  25. MULTIVITAMIN [Concomitant]
  26. POTASSIUM CHLORIDE [Concomitant]

REACTIONS (9)
  - HEADACHE [None]
  - INJECTION SITE ERYTHEMA [None]
  - INJECTION SITE INFLAMMATION [None]
  - INJECTION SITE PRURITUS [None]
  - PHARYNGOLARYNGEAL PAIN [None]
  - PNEUMONIA [None]
  - RASH [None]
  - RASH ERYTHEMATOUS [None]
  - RASH PRURITIC [None]
